FAERS Safety Report 24208781 (Version 2)
Quarter: 2024Q3

REPORT INFORMATION
  Report Type: Spontaneous
  Country: IT (occurrence: IT)
  Receive Date: 20240814
  Receipt Date: 20240904
  Transmission Date: 20241016
  Serious: Yes (Life-Threatening, Hospitalization, Other)
  Sender: MERCK
  Company Number: None

PATIENT
  Age: 67 Year
  Sex: Male
  Weight: 80 kg

DRUGS (4)
  1. KEYTRUDA [Suspect]
     Active Substance: PEMBROLIZUMAB
     Indication: Lung adenocarcinoma
     Dosage: 200 MG EVERY 21 DAYS IN COMBINATION WITH CHEMOTHERAPY
     Route: 042
     Dates: start: 20240528, end: 20240618
  2. KEYTRUDA [Suspect]
     Active Substance: PEMBROLIZUMAB
     Dosage: 200 MG EVERY 21 DAYS IN COMBINATION WITH CHEMOTHERAPY
     Route: 042
     Dates: start: 20240528, end: 20240618
  3. CARBOPLATIN [Suspect]
     Active Substance: CARBOPLATIN
     Indication: Lung adenocarcinoma
     Dosage: AUC 5 EVERY 21 DAYS, BUT DOSE REDUCED BY 30% FOR 480 MG TOTAL
     Route: 042
     Dates: start: 20240528, end: 20240618
  4. PEMETREXED DISODIUM [Suspect]
     Active Substance: PEMETREXED DISODIUM
     Dosage: 500 MG/M2 EVERY 21 DAYS; DOSE REDUCED BY 20%
     Route: 042
     Dates: start: 20240528, end: 20240618

REACTIONS (3)
  - Acute myocardial infarction [Recovered/Resolved]
  - Cytopenia [Recovered/Resolved]
  - Enterocolitis haemorrhagic [Recovered/Resolved]

NARRATIVE: CASE EVENT DATE: 20240625
